FAERS Safety Report 11547782 (Version 1)
Quarter: 2015Q3

REPORT INFORMATION
  Report Type: Spontaneous
  Country: US (occurrence: US)
  Receive Date: 20150903
  Receipt Date: 20150903
  Transmission Date: 20151125
  Serious: No
  Sender: FDA-Public Use
  Company Number: US-ELI_LILLY_AND_COMPANY-US201104003676

PATIENT
  Age: 73 Year
  Sex: Female
  Weight: 81.63 kg

DRUGS (5)
  1. LANTUS [Concomitant]
     Active Substance: INSULIN GLARGINE
     Dosage: UNK
  2. LEVEMIR [Concomitant]
     Active Substance: INSULIN DETEMIR
     Dosage: UNK
  3. FORTEO [Concomitant]
     Active Substance: TERIPARATIDE
     Dosage: UNK
  4. SYMLIN [Concomitant]
     Active Substance: PRAMLINTIDE ACETATE
     Dosage: UNK
  5. HUMALOG [Suspect]
     Active Substance: INSULIN LISPRO
     Indication: DIABETES MELLITUS
     Dosage: 20 U, TID

REACTIONS (3)
  - Visual acuity reduced [Unknown]
  - Incorrect dose administered [Recovered/Resolved]
  - Blood glucose increased [Recovered/Resolved]

NARRATIVE: CASE EVENT DATE: 20110318
